FAERS Safety Report 4412192-9 (Version None)
Quarter: 2004Q3

REPORT INFORMATION
  Report Type: 
  Country: None (occurrence: None)
  Receive Date: 20040727
  Receipt Date: 20040719
  Transmission Date: 20050211
  Serious: Yes (Death)
  Sender: FDA-Public Use
  Company Number: 200410568BCA

PATIENT
  Age: 84 Year
  Sex: Male

DRUGS (5)
  1. ACARBOSE [Suspect]
     Dosage: 100 MG, BID, ORAL
     Route: 048
  2. DIABETA [Suspect]
     Dosage: 10 MG, BID, ORAL
     Route: 048
  3. TEQUIN [Suspect]
     Dosage: 400 MG, QD, INTRAVENOUS
     Route: 042
  4. CEFTIN [Concomitant]
  5. AVANDIA [Suspect]
     Dosage: 2 MG BID ORAL
     Route: 048

REACTIONS (2)
  - CONVULSION [None]
  - HYPOGLYCAEMIA [None]
